FAERS Safety Report 4666061-X (Version None)
Quarter: 2005Q2

REPORT INFORMATION
  Report Type: 
  Country: None (occurrence: None)
  Receive Date: 20050519
  Receipt Date: 20050509
  Transmission Date: 20051028
  Serious: Yes (Hospitalization)
  Sender: FDA-Public Use
  Company Number: US-ROCHE-404239

PATIENT
  Age: 25 Year
  Sex: Female
  Weight: 98.5 kg

DRUGS (8)
  1. PEG-INTERFERON ALFA 2A (RO 25-8310) [Suspect]
     Indication: HEPATITIS C
     Route: 058
     Dates: start: 20050121, end: 20050213
  2. PEG-INTERFERON ALFA 2A (RO 25-8310) [Suspect]
     Dosage: LAST DOSE TAKEN ON 27 MARCH 2005.
     Route: 058
     Dates: start: 20050213
  3. RIBAVIRIN [Suspect]
     Indication: HEPATITIS C
     Route: 048
     Dates: start: 20050121
  4. FOLIC ACID [Concomitant]
  5. VIT. E [Concomitant]
  6. PENICILLIN VK [Concomitant]
  7. PREMARIN [Concomitant]
  8. PROVERA [Concomitant]

REACTIONS (8)
  - CHOLECYSTITIS ACUTE [None]
  - CHOLELITHIASIS [None]
  - DRUG HYPERSENSITIVITY [None]
  - NEUTROPHIL COUNT DECREASED [None]
  - PLEURAL EFFUSION [None]
  - RASH [None]
  - RED MAN SYNDROME [None]
  - RENAL ABSCESS [None]
